FAERS Safety Report 19841554 (Version 1)
Quarter: 2021Q3

REPORT INFORMATION
  Report Type: Spontaneous
  Country: CN (occurrence: CN)
  Receive Date: 20210915
  Receipt Date: 20210915
  Transmission Date: 20211014
  Serious: Yes (Death, Hospitalization, Other)
  Sender: FDA-Public Use
  Company Number: CN-009507513-2109CHN003421

PATIENT
  Age: 56 Year
  Sex: Male
  Weight: 61 kg

DRUGS (6)
  1. TIENAM [Suspect]
     Active Substance: CILASTATIN SODIUM\IMIPENEM
     Dosage: 0.25 G, Q12H
     Route: 041
     Dates: start: 20210804, end: 20210809
  2. CEFOPERAZONE SODIUM AND SULBACTAM SODIUM [Suspect]
     Active Substance: CEFOPERAZONE SODIUM\SULBACTAM SODIUM
     Indication: ABDOMINAL INFECTION
     Dosage: 3 G, Q12H
     Route: 041
     Dates: start: 20210713, end: 20210718
  3. TIENAM [Suspect]
     Active Substance: CILASTATIN SODIUM\IMIPENEM
     Indication: ABDOMINAL INFECTION
     Dosage: 0.5 G, Q12H
     Route: 041
     Dates: start: 20210718, end: 20210720
  4. SODIUM CHLORIDE. [Concomitant]
     Active Substance: SODIUM CHLORIDE
     Indication: ABDOMINAL INFECTION
     Dosage: 100 ML, Q12H
     Route: 041
     Dates: start: 20210713, end: 20210718
  5. SODIUM CHLORIDE. [Concomitant]
     Active Substance: SODIUM CHLORIDE
     Dosage: 100 ML, Q12H
     Route: 041
     Dates: start: 20210718, end: 20210720
  6. SODIUM CHLORIDE. [Concomitant]
     Active Substance: SODIUM CHLORIDE
     Dosage: 100 ML, Q12H
     Route: 041
     Dates: start: 20210804, end: 20210809

REACTIONS (3)
  - Prothrombin time prolonged [Not Recovered/Not Resolved]
  - Death [Fatal]
  - Activated partial thromboplastin time abnormal [Unknown]

NARRATIVE: CASE EVENT DATE: 20210718
